FAERS Safety Report 7887545-7 (Version None)
Quarter: 2011Q4

REPORT INFORMATION
  Report Type: 
  Country: None (occurrence: None)
  Receive Date: 20111103
  Receipt Date: 20111027
  Transmission Date: 20120403
  Serious: Yes (Death)
  Sender: FDA-Public Use
  Company Number: US-BIOGENIDEC-2011BI040989

PATIENT
  Age: 79 Year
  Sex: Female

DRUGS (3)
  1. AVONEX [Suspect]
     Indication: MULTIPLE SCLEROSIS
     Route: 030
     Dates: start: 20091201
  2. AVONEX [Suspect]
     Route: 030
     Dates: start: 20020718
  3. AVONEX [Suspect]
     Route: 030
     Dates: start: 20050701, end: 20081101

REACTIONS (1)
  - DEATH [None]
